FAERS Safety Report 9124355 (Version 3)
Quarter: 2013Q3

REPORT INFORMATION
  Report Type: Spontaneous
  Country: JP (occurrence: JP)
  Receive Date: 20130227
  Receipt Date: 20130703
  Transmission Date: 20140515
  Serious: Yes (Hospitalization)
  Sender: FDA-Public Use
  Company Number: JP-ASTRAZENECA-2013SE11633

PATIENT
  Age: 12297 Day
  Sex: Male
  Weight: 70 kg

DRUGS (5)
  1. CRESTOR [Suspect]
     Indication: HYPERCHOLESTEROLAEMIA
     Route: 048
     Dates: start: 20130109, end: 20130208
  2. PAXIL [Concomitant]
     Indication: PANIC DISORDER
     Dosage: 10 MG, ONLY ONCE OR TWICE A WEEK
     Route: 048
  3. SEPAZON [Concomitant]
     Indication: PANIC DISORDER
     Dosage: DOSE UNKNOWN, ONLY ONCE OR TWICE A WEEK
     Route: 048
  4. LINTON [Concomitant]
     Indication: PANIC DISORDER
     Dosage: DOSE UNKNOWN, ONLY ONCE OR TWICE A WEEK
     Route: 048
  5. BITSAN [Concomitant]
     Indication: PANIC DISORDER
     Dosage: DOSE UNKNOWN, ONLY ONCE OR TWICE A WEEK
     Route: 048

REACTIONS (2)
  - Drug-induced liver injury [Recovering/Resolving]
  - Rhabdomyolysis [Unknown]
